FAERS Safety Report 19698493 (Version 1)
Quarter: 2021Q3

REPORT INFORMATION
  Report Type: Spontaneous
  Country: US (occurrence: US)
  Receive Date: 20210813
  Receipt Date: 20210813
  Transmission Date: 20211014
  Serious: No
  Sender: FDA-Public Use
  Company Number: US-MORPHOSYS US-2021-MOR001120-US

PATIENT
  Sex: Female

DRUGS (2)
  1. LENALIDOMIDE [Concomitant]
     Active Substance: LENALIDOMIDE
     Indication: DIFFUSE LARGE B-CELL LYMPHOMA
     Dosage: 15 MILLIGRAM, QD
  2. MONJUVI [Suspect]
     Active Substance: TAFASITAMAB-CXIX
     Indication: DIFFUSE LARGE B-CELL LYMPHOMA
     Dosage: UNK

REACTIONS (1)
  - Off label use [Unknown]
